FAERS Safety Report 8806548 (Version 3)
Quarter: 2013Q1

REPORT INFORMATION
  Report Type: Spontaneous
  Country: US (occurrence: None)
  Receive Date: 20120918
  Receipt Date: 20121024
  Transmission Date: 20140127
  Serious: Yes (Hospitalization)
  Sender: FDA-Public Use
  Company Number: 2012-0813

PATIENT
  Age: 66 Year
  Sex: Male

DRUGS (9)
  1. KYPROLIS [Suspect]
     Indication: PLASMA CELL MYELOMA
     Dosage: (2 IN 1 WK), INTRAVENOUS
     Route: 042
     Dates: start: 20120813, end: 20120814
  2. TRILIPIX (CHOLINE FENOFIBRATE) (CHOLINE FENOFIBRATE) [Concomitant]
  3. NIASPAN (NICOTINIC ACID) (NICOTINIC ACID) [Concomitant]
  4. FLOMAX (TAMSULOSIN HYDROCHLORIDE) (TAMSULOSIN HYDROCHLORIDE) [Concomitant]
  5. ZOVIRAX (ACICLOVIR) (ACICLOVIR) [Concomitant]
  6. AVODART (DUTASTERIDE) (DUTASTERIDE) [Concomitant]
  7. ASPIRIN (ACETYLSALICYLIC ACID) (ACETYLSALICYLIC ACID) [Concomitant]
  8. REVLIMID (LENALIDOMIDE) (LENALIDOMIDE) [Concomitant]
  9. DEXAMETHASONE (DEXAMETHASONE) (DEXAMETHASONE) [Concomitant]

REACTIONS (3)
  - Chills [None]
  - Atrial flutter [None]
  - Feeling abnormal [None]
